FAERS Safety Report 8280975-3 (Version None)
Quarter: 2012Q2

REPORT INFORMATION
  Report Type: 
  Country: None (occurrence: None)
  Receive Date: 20120412
  Receipt Date: 20120409
  Transmission Date: 20120825
  Serious: Yes (Other)
  Sender: FDA-Public Use
  Company Number: ES-ABBOTT-12P-144-0924107-00

PATIENT
  Age: 55 Year
  Sex: Male

DRUGS (5)
  1. RISPERDAL CONSTA [Concomitant]
     Indication: PRODUCT USED FOR UNKNOWN INDICATION
     Route: 030
     Dates: start: 20110530
  2. AKINETON [Suspect]
     Indication: PRODUCT USED FOR UNKNOWN INDICATION
     Dosage: 4 MG DAILY
     Route: 048
     Dates: start: 20110602
  3. RISPERIDONE [Suspect]
     Indication: SCHIZOPHRENIA, PARANOID TYPE
     Dosage: 6 ML DAILY
     Route: 048
     Dates: start: 20110520
  4. DIAZEPAM [Suspect]
     Indication: INSOMNIA
     Dosage: 10 MG DAILY
     Dates: start: 20110608
  5. LACTITOL [Suspect]
     Indication: CONSTIPATION
     Route: 048
     Dates: start: 20110530

REACTIONS (1)
  - ABNORMAL WEIGHT GAIN [None]
